FAERS Safety Report 15561399 (Version 5)
Quarter: 2019Q4

REPORT INFORMATION
  Report Type: Spontaneous
  Country: US (occurrence: US)
  Receive Date: 20181029
  Receipt Date: 20191217
  Transmission Date: 20200122
  Serious: Yes (Other)
  Sender: FDA-Public Use
  Company Number: US-PFIZER INC-2018430283

PATIENT
  Age: 72 Year
  Sex: Female

DRUGS (1)
  1. IBRANCE [Suspect]
     Active Substance: PALBOCICLIB
     Indication: BREAST CANCER FEMALE
     Dosage: 100 MG, UNK

REACTIONS (9)
  - Myalgia [Not Recovered/Not Resolved]
  - Paraesthesia [Unknown]
  - Fibromyalgia [Unknown]
  - Nerve compression [Unknown]
  - Spinal cord compression [Unknown]
  - Product dose omission [Unknown]
  - Asthenia [Unknown]
  - Muscular weakness [Unknown]
  - Back pain [Unknown]
